FAERS Safety Report 10907521 (Version 3)
Quarter: 2015Q2

REPORT INFORMATION
  Report Type: Other
  Country: GB (occurrence: GB)
  Receive Date: 20150312
  Receipt Date: 20150413
  Transmission Date: 20150821
  Serious: Yes (Hospitalization, Other)
  Sender: FDA-Public Use
  Company Number: GB-MYLANLABS-2015M1006494

PATIENT

DRUGS (8)
  1. ALFUZOSIN [Suspect]
     Active Substance: ALFUZOSIN
     Indication: PRODUCT USED FOR UNKNOWN INDICATION
     Dosage: 10 MG, UNK
     Route: 065
  2. CARBIDOPA. [Suspect]
     Active Substance: CARBIDOPA
     Indication: PRODUCT USED FOR UNKNOWN INDICATION
     Dosage: 150 MG X5
     Route: 065
  3. MIRTAZAPINE. [Suspect]
     Active Substance: MIRTAZAPINE
     Indication: PRODUCT USED FOR UNKNOWN INDICATION
     Dosage: 30 MILLIGRAM DAILY; IN THE EVENING
     Route: 065
  4. AMANTADINE [Suspect]
     Active Substance: AMANTADINE
     Indication: PRODUCT USED FOR UNKNOWN INDICATION
     Dosage: 200/100MG
     Route: 065
  5. APOMORPHINE [Suspect]
     Active Substance: APOMORPHINE
     Indication: PRODUCT USED FOR UNKNOWN INDICATION
     Dosage: UNK (TAKEN FOR 3 YEARS. 3.5MG/HOUR DAY, 2.5MG/HOUR NIGHT)
     Route: 065
     Dates: start: 2012
  6. LEVODOPA [Suspect]
     Active Substance: LEVODOPA
     Indication: PRODUCT USED FOR UNKNOWN INDICATION
     Dosage: UNK
  7. FINASTERIDE. [Suspect]
     Active Substance: FINASTERIDE
     Indication: PRODUCT USED FOR UNKNOWN INDICATION
     Dosage: 5 MG, UNK
     Route: 065
  8. ENTACAPONE. [Suspect]
     Active Substance: ENTACAPONE
     Indication: PRODUCT USED FOR UNKNOWN INDICATION
     Dosage: UNK

REACTIONS (13)
  - On and off phenomenon [Unknown]
  - Skin haemorrhage [Unknown]
  - Oral discomfort [Not Recovered/Not Resolved]
  - Formication [Unknown]
  - Nasal discomfort [Unknown]
  - Hallucination, visual [Unknown]
  - Rash [Unknown]
  - Sensory disturbance [Unknown]
  - Depressed mood [Unknown]
  - Pelvic fracture [Unknown]
  - Fall [Unknown]
  - Soft tissue mass [Unknown]
  - Illusion [Unknown]
